FAERS Safety Report 14489929 (Version 1)
Quarter: 2018Q1

REPORT INFORMATION
  Report Type: Spontaneous
  Country: DK (occurrence: DK)
  Receive Date: 20180206
  Receipt Date: 20180206
  Transmission Date: 20180509
  Serious: Yes (Hospitalization)
  Sender: FDA-Public Use
  Company Number: DK-UNICHEM PHARMACEUTICALS (USA) INC-UCM201802-000025

PATIENT
  Age: 71 Year
  Sex: Male

DRUGS (2)
  1. AMLODIPINE [Suspect]
     Active Substance: AMLODIPINE BESYLATE
  2. SIMVASTATIN. [Suspect]
     Active Substance: SIMVASTATIN
     Dosage: HIGH DOSE

REACTIONS (4)
  - Gait inability [Unknown]
  - Drug interaction [Unknown]
  - Myopathy [Unknown]
  - Rhabdomyolysis [Unknown]
